FAERS Safety Report 4844805-1 (Version None)
Quarter: 2005Q4

REPORT INFORMATION
  Report Type: 
  Country: None (occurrence: None)
  Receive Date: 20051205
  Receipt Date: 20051128
  Transmission Date: 20060501
  Serious: Yes (Hospitalization)
  Sender: FDA-Public Use
  Company Number: AU-BRISTOL-MYERS SQUIBB COMPANY-13193792

PATIENT
  Age: 60 Year
  Sex: Male

DRUGS (2)
  1. AVAPRO-HCT TABS 300 MG/12.5 MG [Suspect]
     Indication: ESSENTIAL HYPERTENSION
     Route: 048
  2. DIPHENOXYLATE HCL [Concomitant]
     Indication: DIARRHOEA
     Dates: start: 20040426, end: 20040427

REACTIONS (4)
  - CIRCULATORY COLLAPSE [None]
  - DIARRHOEA [None]
  - HYPOTENSION [None]
  - HYPOVOLAEMIA [None]
